FAERS Safety Report 5715344-0 (Version None)
Quarter: 2008Q2

REPORT INFORMATION
  Report Type: 
  Country: None (occurrence: None)
  Receive Date: 20080423
  Receipt Date: 20080411
  Transmission Date: 20081010
  Serious: Yes (Other)
  Sender: FDA-Public Use
  Company Number: US-PFIZER INC-2008032290

PATIENT
  Sex: Female

DRUGS (3)
  1. DEPO-MEDROL [Suspect]
  2. LIDOCAINE [Suspect]
  3. MARCAINE [Suspect]

REACTIONS (1)
  - ARTHRALGIA [None]
